FAERS Safety Report 5739421-3 (Version None)
Quarter: 2008Q2

REPORT INFORMATION
  Report Type: 
  Country: None (occurrence: None)
  Receive Date: 20080515
  Receipt Date: 20080505
  Transmission Date: 20081010
  Serious: Yes (Other)
  Sender: FDA-Public Use
  Company Number: FR-PFIZER INC-2008039086

PATIENT
  Sex: Male

DRUGS (3)
  1. ANSATIPINE [Suspect]
     Dates: start: 20080123, end: 20080201
  2. RIFADIN [Suspect]
     Route: 048
     Dates: start: 20071220, end: 20080105
  3. PREDNISONE TAB [Suspect]
     Route: 048

REACTIONS (5)
  - EOSINOPHILIA [None]
  - PRURITUS [None]
  - PYREXIA [None]
  - RASH [None]
  - TOXIC SKIN ERUPTION [None]
